FAERS Safety Report 20719289 (Version 1)
Quarter: 2022Q2

REPORT INFORMATION
  Report Type: Spontaneous
  Country: US (occurrence: US)
  Receive Date: 20220418
  Receipt Date: 20220418
  Transmission Date: 20220721
  Serious: Yes (Life-Threatening, Hospitalization, Other)
  Sender: FDA-Public Use
  Company Number: US-MLMSERVICE-20220404-3475794-1

PATIENT
  Age: 71 Year
  Sex: Male

DRUGS (2)
  1. CISPLATIN [Suspect]
     Active Substance: CISPLATIN
     Indication: Squamous cell carcinoma of lung
  2. LEVOTHYROXINE [Concomitant]
     Active Substance: LEVOTHYROXINE

REACTIONS (4)
  - Cardiomyopathy [Recovering/Resolving]
  - Hypoparathyroidism [Recovering/Resolving]
  - Cardiac failure [Recovering/Resolving]
  - Hypomagnesaemia [Recovering/Resolving]
